FAERS Safety Report 21469646 (Version 1)
Quarter: 2022Q4

REPORT INFORMATION
  Report Type: Spontaneous
  Country: US (occurrence: US)
  Receive Date: 20221018
  Receipt Date: 20221018
  Transmission Date: 20230113
  Serious: No
  Sender: FDA-Public Use
  Company Number: US-ADAMAS PHARMA, LLC-2021ADA02811

PATIENT
  Sex: Male
  Weight: 90.703 kg

DRUGS (11)
  1. GOCOVRI [Suspect]
     Active Substance: AMANTADINE
     Indication: Dyskinesia
     Dosage: 137 MG, 1X/DAY AT BEDTIME
     Route: 048
     Dates: start: 202109, end: 2021
  2. GOCOVRI [Suspect]
     Active Substance: AMANTADINE
     Indication: On and off phenomenon
     Dosage: 274 MG, 1X/DAY AT BEDTIME
     Route: 048
     Dates: start: 2021, end: 202111
  3. GOCOVRI [Suspect]
     Active Substance: AMANTADINE
     Dosage: 137 MG, 1X/DAY AT BEDTIME
     Route: 048
     Dates: start: 202111
  4. CARBIDOPA/LEVODOPA CR [Concomitant]
  5. FINASTERIDE [Concomitant]
     Active Substance: FINASTERIDE
  6. LEVOTHYROXINE [Concomitant]
     Active Substance: LEVOTHYROXINE
  7. OXYBUTYNIN [Concomitant]
     Active Substance: OXYBUTYNIN
  8. TAMSULOSIN [Concomitant]
     Active Substance: TAMSULOSIN
  9. DEEP BRAIN STIMULATION [Concomitant]
     Dosage: UNK
     Dates: start: 202108
  10. DEEP BRAIN STIMULATION [Concomitant]
     Dosage: REPROGRAMMING
     Dates: start: 202110
  11. DEEP BRAIN STIMULATION [Concomitant]
     Dosage: REPROGRAMMING
     Dates: start: 20211117

REACTIONS (3)
  - Visual impairment [Recovered/Resolved]
  - Vision blurred [Recovering/Resolving]
  - Hallucination, visual [Recovered/Resolved]

NARRATIVE: CASE EVENT DATE: 20210101
